FAERS Safety Report 5993555-7 (Version None)
Quarter: 2008Q4

REPORT INFORMATION
  Report Type: 
  Country: None (occurrence: None)
  Receive Date: 20081212
  Receipt Date: 20081204
  Transmission Date: 20090506
  Serious: Yes (Other)
  Sender: FDA-Public Use
  Company Number: PHEH2008US10194

PATIENT
  Sex: Female

DRUGS (2)
  1. MIACALCIN [Suspect]
     Dosage: UNK
  2. ANTIHYPERTENSIVE DRUGS [Concomitant]

REACTIONS (6)
  - ANAPHYLACTIC REACTION [None]
  - DYSPHAGIA [None]
  - DYSPNOEA [None]
  - HYPERSENSITIVITY [None]
  - PHARYNGEAL OEDEMA [None]
  - TONGUE OEDEMA [None]
